FAERS Safety Report 9289070 (Version 5)
Quarter: 2015Q2

REPORT INFORMATION
  Report Type: Spontaneous
  Country: US (occurrence: US)
  Receive Date: 20130514
  Receipt Date: 20150618
  Transmission Date: 20150821
  Serious: No
  Sender: FDA-Public Use
  Company Number: US-009507513-1305USA008458

PATIENT
  Sex: Male
  Weight: 94.79 kg

DRUGS (2)
  1. PROPECIA [Suspect]
     Active Substance: FINASTERIDE
     Dosage: 1MG QD
     Route: 048
     Dates: start: 20070821
  2. PROPECIA [Suspect]
     Active Substance: FINASTERIDE
     Indication: ALOPECIA
     Dosage: 1 MG, QD
     Route: 048
     Dates: start: 20060305, end: 20070607

REACTIONS (22)
  - Sunburn [Unknown]
  - Bronchitis [Unknown]
  - Blood cholesterol increased [Unknown]
  - Hypothyroidism [Unknown]
  - Upper extremity mass [Unknown]
  - Vocal cord disorder [Unknown]
  - Ejaculation delayed [Unknown]
  - Gynaecomastia [Unknown]
  - Vitamin D decreased [Unknown]
  - Ulcer [Unknown]
  - Amnesia [Unknown]
  - Gastrooesophageal reflux disease [Not Recovered/Not Resolved]
  - Libido decreased [Unknown]
  - Erectile dysfunction [Not Recovered/Not Resolved]
  - Disturbance in attention [Unknown]
  - Headache [Unknown]
  - Liver function test abnormal [Recovered/Resolved]
  - Bowel movement irregularity [Unknown]
  - Back pain [Not Recovered/Not Resolved]
  - Dry skin [Unknown]
  - Blood cholesterol increased [Unknown]
  - Sexual dysfunction [Not Recovered/Not Resolved]

NARRATIVE: CASE EVENT DATE: 20060427
